FAERS Safety Report 8445332 (Version 4)
Quarter: 2022Q4

REPORT INFORMATION
  Report Type: Spontaneous
  Country: US (occurrence: None)
  Receive Date: 20120307
  Receipt Date: 20221007
  Transmission Date: 20230113
  Serious: Yes (Other)
  Sender: FDA-Public Use
  Company Number: US-ROCHE-1044455

PATIENT
  Age: 58 Year
  Sex: Female

DRUGS (17)
  1. BONIVA [Suspect]
     Active Substance: IBANDRONATE SODIUM
     Indication: Osteopenia
     Route: 048
     Dates: start: 200605, end: 2008
  2. BONIVA [Suspect]
     Active Substance: IBANDRONATE SODIUM
     Indication: Osteoporosis
  3. FOSAMAX [Suspect]
     Active Substance: ALENDRONATE SODIUM
     Indication: Osteopenia
     Route: 065
     Dates: start: 2004, end: 200605
  4. FOSAMAX [Suspect]
     Active Substance: ALENDRONATE SODIUM
     Indication: Osteoporosis
  5. OXYCODONE [Concomitant]
     Active Substance: OXYCODONE
     Indication: Pain
  6. CELEBREX [Concomitant]
     Active Substance: CELECOXIB
     Indication: Arthritis
  7. PREDNISONE [Concomitant]
     Active Substance: PREDNISONE
     Indication: Arthritis
  8. OXYCONTIN [Concomitant]
     Active Substance: OXYCODONE HYDROCHLORIDE
     Indication: Pain
  9. FORTEO [Concomitant]
     Active Substance: TERIPARATIDE
  10. SINGULAIR [Concomitant]
     Active Substance: MONTELUKAST SODIUM
     Indication: Hypersensitivity
  11. AMBIEN [Concomitant]
     Active Substance: ZOLPIDEM TARTRATE
     Indication: Sleep disorder
  12. PROVAIR [Concomitant]
     Indication: Asthma
  13. LEXAPRO [Concomitant]
     Active Substance: ESCITALOPRAM OXALATE
  14. VIACTIV [Concomitant]
  15. PREMARIN [Concomitant]
     Active Substance: ESTROGENS, CONJUGATED
  16. ENBREL [Concomitant]
     Active Substance: ETANERCEPT
     Indication: Arthritis
  17. HUMIRA [Concomitant]
     Active Substance: ADALIMUMAB

REACTIONS (5)
  - Femur fracture [Unknown]
  - Anxiety [Unknown]
  - Emotional distress [Unknown]
  - Low turnover osteopathy [Unknown]
  - Depression [Unknown]

NARRATIVE: CASE EVENT DATE: 20070505
